FAERS Safety Report 13273063 (Version 3)
Quarter: 2017Q2

REPORT INFORMATION
  Report Type: Spontaneous
  Country: CA (occurrence: CA)
  Receive Date: 20170227
  Receipt Date: 20170602
  Transmission Date: 20170830
  Serious: Yes (Other)
  Sender: FDA-Public Use
  Company Number: CA-PFIZER INC-2017078624

PATIENT
  Age: 64 Year
  Sex: Female

DRUGS (5)
  1. FASLODEX [Concomitant]
     Active Substance: FULVESTRANT
     Dosage: UNK
  2. IBRANCE [Suspect]
     Active Substance: PALBOCICLIB
     Dosage: 100MG, CYCLIC (1 CAPSULE 21/28 DAYS)
     Route: 048
     Dates: start: 201702
  3. IBRANCE [Suspect]
     Active Substance: PALBOCICLIB
     Indication: BREAST CANCER
     Dosage: 125 MG, CYCLIC( 1 CAPSULE EVERY DAY  FOR 21 DAYS, THEN 7 DAYS OFF)
     Route: 048
     Dates: start: 20170110, end: 20170124
  4. IBRANCE [Suspect]
     Active Substance: PALBOCICLIB
     Dosage: 75MG, CYCLIC (1 CAPSULE EVERY 21/28 DAYS)
     Route: 048
     Dates: start: 201704
  5. IBRANCE [Suspect]
     Active Substance: PALBOCICLIB
     Dosage: 125MG, CYCLIC (1 CAPSULE EVERY 21/28 DAYS)
     Route: 048
     Dates: start: 20170110

REACTIONS (4)
  - Full blood count decreased [Recovering/Resolving]
  - Cataract [Unknown]
  - Urinary tract infection [Unknown]
  - Product use in unapproved indication [Unknown]

NARRATIVE: CASE EVENT DATE: 201701
